FAERS Safety Report 25348218 (Version 1)
Quarter: 2025Q2

REPORT INFORMATION
  Report Type: Spontaneous
  Country: US (occurrence: None)
  Receive Date: 20250522
  Receipt Date: 20250522
  Transmission Date: 20250716
  Serious: No
  Sender: FDA-CTU
  Company Number: None

PATIENT

DRUGS (1)
  1. ZOLPIDEM [Suspect]
     Active Substance: ZOLPIDEM TARTRATE

REACTIONS (8)
  - Dizziness [None]
  - Drug ineffective [None]
  - Fall [None]
  - Somnolence [None]
  - Somnolence [None]
  - Depressive symptom [None]
  - Dry mouth [None]
  - Confusional state [None]
